FAERS Safety Report 8190253-9 (Version None)
Quarter: 2012Q1

REPORT INFORMATION
  Report Type: 
  Country: None (occurrence: None)
  Receive Date: 20120305
  Receipt Date: 20120210
  Transmission Date: 20120608
  Serious: Yes (Other)
  Sender: FDA-Public Use
  Company Number: 2012P1004534

PATIENT
  Age: 51 Year
  Sex: Male
  Weight: 83.9154 kg

DRUGS (9)
  1. LORAZEPAM [Concomitant]
  2. LEVOXYL [Concomitant]
  3. LITHIUM CARBONATE [Suspect]
     Indication: BIPOLAR DISORDER
     Dosage: 900 MG;BID, 900 MG;QD, 1350 MG;QD
     Dates: start: 20120122, end: 20120207
  4. LITHIUM CARBONATE [Suspect]
     Indication: BIPOLAR DISORDER
     Dosage: 900 MG;BID, 900 MG;QD, 1350 MG;QD
     Dates: start: 20120208
  5. LITHIUM CARBONATE [Suspect]
     Indication: BIPOLAR DISORDER
     Dosage: 900 MG;BID, 900 MG;QD, 1350 MG;QD
     Dates: start: 20120208
  6. PERPHENAZINE [Suspect]
     Dates: end: 20120214
  7. UNSPECIFIED THYROID REPLACEMENT [Concomitant]
  8. DIVALPROEX SODIUM [Concomitant]
  9. LITHIUM CARBONATE [Suspect]
     Indication: BIPOLAR DISORDER
     Dosage: 900 MG;BID
     Dates: end: 20120122

REACTIONS (7)
  - ANTIPSYCHOTIC DRUG LEVEL BELOW THERAPEUTIC [None]
  - THINKING ABNORMAL [None]
  - FATIGUE [None]
  - AGITATION [None]
  - SUICIDAL IDEATION [None]
  - BURNOUT SYNDROME [None]
  - HYPOAESTHESIA [None]
